FAERS Safety Report 16945679 (Version 1)
Quarter: 2019Q4

REPORT INFORMATION
  Report Type: Spontaneous
  Country: US (occurrence: US)
  Receive Date: 20191022
  Receipt Date: 20191022
  Transmission Date: 20200122
  Serious: No
  Sender: FDA-Public Use
  Company Number: US-XTTRIUM LABORATORIES, INC-2075915

PATIENT
  Sex: Female

DRUGS (1)
  1. CHLORHEXIDINE GLUCONATE. [Suspect]
     Active Substance: CHLORHEXIDINE GLUCONATE
     Indication: DENTAL CARE
     Route: 048

REACTIONS (5)
  - Vomiting [Unknown]
  - Lymphadenopathy [Unknown]
  - Dry mouth [Unknown]
  - Tongue discolouration [Unknown]
  - Pharyngeal erythema [Unknown]

NARRATIVE: CASE EVENT DATE: 20190829
